FAERS Safety Report 24048386 (Version 2)
Quarter: 2024Q3

REPORT INFORMATION
  Report Type: Spontaneous
  Country: IL (occurrence: IL)
  Receive Date: 20240704
  Receipt Date: 20240826
  Transmission Date: 20241016
  Serious: Yes (Other)
  Sender: NOVO NORDISK
  Company Number: IL-NOVOPROD-1234366

PATIENT
  Sex: Male
  Weight: 97 kg

DRUGS (5)
  1. OZEMPIC [Suspect]
     Active Substance: SEMAGLUTIDE
     Indication: Blood glucose increased
     Dosage: UNK (STARTED EXACTLY 3 YEARS AGO)
  2. OZEMPIC [Suspect]
     Active Substance: SEMAGLUTIDE
     Indication: Overweight
     Dosage: 1MG
  3. OZEMPIC [Suspect]
     Active Substance: SEMAGLUTIDE
     Dosage: UNK
  4. GLUCOMINE [METFORMIN HYDROCHLORIDE] [Concomitant]
     Dosage: UNK
  5. LIPITOR [Concomitant]
     Active Substance: ATORVASTATIN CALCIUM
     Dosage: UNK

REACTIONS (6)
  - Loss of consciousness [Unknown]
  - Abdominal pain [Unknown]
  - Diarrhoea [Unknown]
  - Vomiting [Unknown]
  - Weight decreased [Unknown]
  - Hypoglycaemia [Unknown]
